FAERS Safety Report 9982745 (Version 1)
Quarter: 2014Q1

REPORT INFORMATION
  Report Type: Report from Study
  Country: US (occurrence: US)
  Receive Date: 20140307
  Receipt Date: 20140307
  Transmission Date: 20141002
  Serious: No
  Sender: FDA-Public Use
  Company Number: US-ABBVIE-13P-163-1180901-00

PATIENT
  Sex: Female

DRUGS (9)
  1. HUMIRA [Suspect]
     Indication: CROHN^S DISEASE
     Dates: start: 20130823
  2. PROTONIX [Concomitant]
     Indication: GASTROOESOPHAGEAL REFLUX DISEASE
  3. SUCRALFATE [Concomitant]
     Indication: PRODUCT USED FOR UNKNOWN INDICATION
  4. TUMS EXTRA STRENGTH [Concomitant]
     Indication: GASTROOESOPHAGEAL REFLUX DISEASE
  5. TUMS EXTRA STRENGTH [Concomitant]
     Indication: MINERAL SUPPLEMENTATION
  6. VITAMIN D2 [Concomitant]
     Indication: PRODUCT USED FOR UNKNOWN INDICATION
  7. COUMADIN [Concomitant]
     Indication: PRODUCT USED FOR UNKNOWN INDICATION
     Dosage: DOSE FLUCTUATES WEEKLY OR EVERY 2 WEEKS
  8. COUMADIN [Concomitant]
     Dosage: 1 - 1.5 TABLETS
     Dates: start: 2013
  9. PROPANOLOL [Concomitant]
     Indication: PRODUCT USED FOR UNKNOWN INDICATION

REACTIONS (9)
  - Skin ulcer [Unknown]
  - Alopecia [Not Recovered/Not Resolved]
  - Dry skin [Unknown]
  - Visual impairment [Recovering/Resolving]
  - Upper-airway cough syndrome [Unknown]
  - Pruritus [Unknown]
  - Oropharyngeal pain [Recovered/Resolved]
  - Visual impairment [Recovering/Resolving]
  - Photopsia [Recovering/Resolving]
